FAERS Safety Report 4798388-5 (Version None)
Quarter: 2005Q4

REPORT INFORMATION
  Report Type: 
  Country: None (occurrence: None)
  Receive Date: 20051014
  Receipt Date: 20051003
  Transmission Date: 20060501
  Serious: Yes (Other)
  Sender: FDA-Public Use
  Company Number: US-GLAXOSMITHKLINE-A0576785A

PATIENT
  Age: 36 Year
  Sex: Female
  Weight: 54 kg

DRUGS (5)
  1. NICORETTE (ORANGE) [Suspect]
     Indication: EX-SMOKER
     Route: 002
     Dates: start: 20050927, end: 20050930
  2. GEODON [Concomitant]
  3. TOPAMAX [Concomitant]
  4. XANAX [Concomitant]
  5. MAXALT [Concomitant]

REACTIONS (4)
  - DRUG ADMINISTRATION ERROR [None]
  - EMOTIONAL DISORDER [None]
  - INTENTIONAL DRUG MISUSE [None]
  - SUICIDAL IDEATION [None]
